FAERS Safety Report 13170189 (Version 1)
Quarter: 2017Q1

REPORT INFORMATION
  Report Type: Spontaneous
  Country: LK (occurrence: LK)
  Receive Date: 20170131
  Receipt Date: 20170131
  Transmission Date: 20170428
  Serious: Yes (Hospitalization, Other)
  Sender: FDA-Public Use
  Company Number: LK-MYLANLABS-2017M1005047

PATIENT

DRUGS (5)
  1. CEFUROXIME. [Suspect]
     Active Substance: CEFUROXIME
     Indication: PRODUCT USED FOR UNKNOWN INDICATION
     Route: 042
  2. CEFUROXIME. [Suspect]
     Active Substance: CEFUROXIME
     Route: 048
  3. PREDNISOLONE. [Suspect]
     Active Substance: PREDNISOLONE
     Indication: STEROID THERAPY
     Dosage: 40MG DAILY
     Route: 065
  4. COLESTYRAMINE [Concomitant]
     Active Substance: CHOLESTYRAMINE
     Indication: PRODUCT USED FOR UNKNOWN INDICATION
     Route: 065
  5. URSODEOXYCHOLIC ACID [Concomitant]
     Active Substance: URSODIOL
     Indication: PRODUCT USED FOR UNKNOWN INDICATION
     Route: 065

REACTIONS (3)
  - Condition aggravated [Recovered/Resolved]
  - Cholangitis [Recovered/Resolved]
  - Cholestasis [Recovered/Resolved]
